FAERS Safety Report 6449677-X (Version None)
Quarter: 2009Q4

REPORT INFORMATION
  Report Type: 
  Country: None (occurrence: None)
  Receive Date: 20091120
  Receipt Date: 20091117
  Transmission Date: 20100525
  Serious: Yes (Hospitalization, Other)
  Sender: FDA-Public Use
  Company Number: US-WYE-H12175809

PATIENT
  Sex: Female

DRUGS (4)
  1. PREMARIN [Suspect]
     Indication: HORMONE REPLACEMENT THERAPY
     Dosage: UNKNOWN
     Route: 065
  2. PREMARIN [Suspect]
     Indication: VULVOVAGINAL DRYNESS
  3. PREMARIN [Suspect]
     Indication: PROPHYLAXIS
  4. ESTRADIOL [Suspect]

REACTIONS (1)
  - HEART VALVE INCOMPETENCE [None]
